FAERS Safety Report 4780614-X (Version None)
Quarter: 2005Q3

REPORT INFORMATION
  Report Type: 
  Country: None (occurrence: None)
  Receive Date: 20050926
  Receipt Date: 20050902
  Transmission Date: 20060218
  Serious: Yes (Other)
  Sender: FDA-Public Use
  Company Number: 2005123751

PATIENT
  Age: 55 Year
  Sex: Female

DRUGS (12)
  1. BEXTRA [Suspect]
     Indication: JOINT INJURY
     Dates: start: 20041101, end: 20041107
  2. ALBUTEROL [Concomitant]
  3. TOBRADEX [Concomitant]
  4. FLUOCINONIDE [Concomitant]
  5. PRINIVIL [Concomitant]
  6. IBUPROFEN [Concomitant]
  7. CALCIUM WITH VITAMIN D (CALCIUM PHOSPHATE, CALCIUM SODIUM LACTATE, ERG [Concomitant]
  8. DETROL LA [Concomitant]
  9. LAC-HYDRIN (AMMONIUM LACTATE) [Concomitant]
  10. SPIRIVA [Concomitant]
  11. SYNTHROID [Concomitant]
  12. PREMARIN [Concomitant]

REACTIONS (6)
  - BRONCHITIS [None]
  - DRUG HYPERSENSITIVITY [None]
  - HEADACHE [None]
  - PHARYNGOLARYNGEAL PAIN [None]
  - PSORIASIS [None]
  - STEVENS-JOHNSON SYNDROME [None]
